FAERS Safety Report 7117962-4 (Version None)
Quarter: 2010Q4

REPORT INFORMATION
  Report Type: 
  Country: None (occurrence: None)
  Receive Date: 20101123
  Receipt Date: 20101117
  Transmission Date: 20110411
  Serious: Yes (Death)
  Sender: FDA-Public Use
  Company Number: PHHY2010CA77499

PATIENT
  Sex: Female

DRUGS (12)
  1. ACLASTA [Suspect]
     Indication: OSTEOPOROSIS
     Dosage: UNK
     Dates: start: 20090303
  2. ASPIRIN [Concomitant]
  3. CALCIUM [Concomitant]
  4. VITAMIN D [Concomitant]
  5. LIPITOR [Concomitant]
     Dosage: UNK
     Dates: start: 20060101
  6. HYDROCHLOROTHIAZIDE [Concomitant]
     Dosage: UNK
     Dates: start: 20070101
  7. CARDIAZEM [Concomitant]
     Dosage: UNK
     Dates: start: 20030101
  8. RAMIPRIL [Concomitant]
     Dosage: UNK
     Dates: start: 20030101
  9. FLOMAX [Concomitant]
     Dosage: UNK
     Dates: start: 20100101
  10. SYMBICORT [Concomitant]
     Dosage: UNK
     Dates: start: 20100101
  11. SPIRIVA [Concomitant]
     Dosage: UNK
     Dates: start: 20100101
  12. VENTOLIN [Concomitant]
     Dosage: UNK
     Dates: start: 20100101

REACTIONS (2)
  - CEREBROVASCULAR ACCIDENT [None]
  - PNEUMONIA [None]
